FAERS Safety Report 17471811 (Version 2)
Quarter: 2020Q1

REPORT INFORMATION
  Report Type: Spontaneous
  Country: JP (occurrence: JP)
  Receive Date: 20200228
  Receipt Date: 20200305
  Transmission Date: 20200409
  Serious: Yes (Other)
  Sender: FDA-Public Use
  Company Number: JP-GLAXOSMITHKLINE-JP2020019573

PATIENT
  Age: 9 Year
  Sex: Female

DRUGS (1)
  1. RELENZA [Suspect]
     Active Substance: ZANAMIVIR
     Indication: INFLUENZA
     Dosage: 10 MG, BID
     Route: 055
     Dates: start: 20200203, end: 20200207

REACTIONS (3)
  - Encephalopathy [Unknown]
  - Abnormal behaviour [Unknown]
  - Nightmare [Unknown]

NARRATIVE: CASE EVENT DATE: 20200203
